FAERS Safety Report 6046850-X (Version None)
Quarter: 2009Q1

REPORT INFORMATION
  Report Type: 
  Country: None (occurrence: None)
  Receive Date: 20090122
  Receipt Date: 20090114
  Transmission Date: 20090719
  Serious: Yes (Death)
  Sender: FDA-Public Use
  Company Number: A0764391A

PATIENT
  Age: 48 Year
  Sex: Female
  Weight: 100 kg

DRUGS (2)
  1. SERETIDE [Suspect]
     Route: 055
     Dates: start: 20081206
  2. LASIX [Concomitant]
     Dates: start: 20080101, end: 20081229

REACTIONS (1)
  - EMPHYSEMA [None]
